FAERS Safety Report 5319610-2 (Version None)
Quarter: 2007Q2

REPORT INFORMATION
  Report Type: 
  Country: None (occurrence: None)
  Receive Date: 20070508
  Receipt Date: 20070426
  Transmission Date: 20071010
  Serious: Yes (Hospitalization)
  Sender: FDA-Public Use
  Company Number: FR-PFIZER INC-2007035197

PATIENT
  Age: 50 Year
  Sex: Female

DRUGS (5)
  1. ATARAX [Suspect]
     Route: 048
     Dates: start: 20070223, end: 20070225
  2. CETIRIZINE HCL [Suspect]
     Route: 048
     Dates: start: 20070222, end: 20070225
  3. PYOSTACINE [Suspect]
     Indication: SINUSITIS
     Route: 048
     Dates: start: 20070212, end: 20070220
  4. TRAMADOL HYDROCHLORIDE AND ACETAMINOPHEN [Suspect]
     Indication: SINUSITIS
     Route: 048
     Dates: start: 20070212, end: 20070220
  5. FORLAX [Concomitant]
     Indication: SINUSITIS
     Route: 048
     Dates: start: 20070212, end: 20070220

REACTIONS (3)
  - PRURITUS [None]
  - TONGUE OEDEMA [None]
  - URTICARIA [None]
